FAERS Safety Report 7995925-4 (Version None)
Quarter: 2011Q4

REPORT INFORMATION
  Report Type: 
  Country: None (occurrence: None)
  Receive Date: 20111220
  Receipt Date: 20111215
  Transmission Date: 20120403
  Serious: Yes (Other)
  Sender: FDA-Public Use
  Company Number: FR-NAPPMUNDI-GBR-2011-0009225

PATIENT
  Age: 53 Year
  Sex: Female

DRUGS (2)
  1. OXYCODONE HYDROCHLORIDE [Suspect]
     Indication: CANCER PAIN
     Dosage: UNK
     Dates: end: 20111201
  2. OXYCONTIN [Suspect]
     Indication: CANCER PAIN
     Dosage: UNK
     Route: 048
     Dates: end: 20111201

REACTIONS (2)
  - JAUNDICE [None]
  - BLOOD BILIRUBIN INCREASED [None]
